FAERS Safety Report 10887169 (Version 1)
Quarter: 2015Q1

REPORT INFORMATION
  Report Type: Spontaneous
  Country: US (occurrence: US)
  Receive Date: 20150304
  Receipt Date: 20150304
  Transmission Date: 20150721
  Serious: No
  Sender: FDA-Public Use
  Company Number: US-GLAXOSMITHKLINE-US2014GSK053536

PATIENT

DRUGS (1)
  1. TARGET NTS 14MG TRANSDERMAL PATCH [Suspect]
     Active Substance: NICOTINE
     Dosage: 14 MG, UNK
     Route: 062
     Dates: start: 20140106

REACTIONS (1)
  - Pruritus [Recovered/Resolved]

NARRATIVE: CASE EVENT DATE: 20140106
